FAERS Safety Report 6768631-1 (Version None)
Quarter: 2010Q2

REPORT INFORMATION
  Report Type: 
  Country: None (occurrence: None)
  Receive Date: 20100614
  Receipt Date: 20100608
  Transmission Date: 20101027
  Serious: Yes (Death, Other)
  Sender: FDA-Public Use
  Company Number: FR-CELGENEUS-056-21880-10060966

PATIENT

DRUGS (3)
  1. REVLIMID [Suspect]
     Route: 048
  2. NEUPOGEN [Concomitant]
     Indication: NEUTROPENIA
     Route: 065
  3. TRANSFUSION [Concomitant]
     Indication: DRUG USE FOR UNKNOWN INDICATION
     Route: 065

REACTIONS (11)
  - ANGIOEDEMA [None]
  - DEATH [None]
  - DEEP VEIN THROMBOSIS [None]
  - DIARRHOEA [None]
  - HAEMORRHAGE [None]
  - NEUTROPENIA [None]
  - PANCYTOPENIA [None]
  - SEPSIS [None]
  - SKIN REACTION [None]
  - THROMBOCYTOPENIA [None]
  - TOXIC EPIDERMAL NECROLYSIS [None]
